FAERS Safety Report 10901201 (Version 1)
Quarter: 2015Q1

REPORT INFORMATION
  Report Type: Spontaneous
  Country: IN (occurrence: IN)
  Receive Date: 20150310
  Receipt Date: 20150310
  Transmission Date: 20150721
  Serious: Yes (Other)
  Sender: FDA-Public Use
  Company Number: IN-MYLANLABS-2015M1007358

PATIENT

DRUGS (1)
  1. DEXAMETHASONE. [Suspect]
     Active Substance: DEXAMETHASONE
     Route: 065

REACTIONS (2)
  - Secondary adrenocortical insufficiency [Unknown]
  - Adrenocortical insufficiency acute [Unknown]
